FAERS Safety Report 6755893-X (Version None)
Quarter: 2010Q2

REPORT INFORMATION
  Report Type: 
  Country: None (occurrence: None)
  Receive Date: 20100604
  Receipt Date: 20100525
  Transmission Date: 20101027
  Serious: Yes (Hospitalization)
  Sender: FDA-Public Use
  Company Number: US-ALEXION-A201000525

PATIENT
  Sex: Female

DRUGS (21)
  1. SOLIRIS [Suspect]
     Indication: PAROXYSMAL NOCTURNAL HAEMOGLOBINURIA
     Dosage: 600 MG, QWX4
     Route: 042
     Dates: start: 20091217
  2. SOLIRIS [Suspect]
     Dosage: 900 MG, Q2W
     Route: 042
     Dates: start: 20100116
  3. XOPENEX [Concomitant]
     Dosage: 1.25 UNIT DOSE Q6H
  4. LASIX [Concomitant]
     Dosage: 40 MG, BID
     Route: 048
  5. IMDUR [Concomitant]
     Dosage: 30 MG, BID
  6. SYNTHROID [Concomitant]
     Dosage: 0.15 MG, QD
  7. PROTONIX [Concomitant]
     Dosage: 40 MG, BID
  8. POTASSIUM CHLORIDE [Concomitant]
     Dosage: 10 MEQ, QD
  9. PREDNISONE TAB [Concomitant]
     Dosage: 20 MG, QD
  10. MICARDIS [Concomitant]
     Dosage: 40, QD
  11. DARVOCET [Concomitant]
     Indication: PAIN
     Dosage: 100, 1-2 Q6H
  12. ZOVIRAX                            /00587301/ [Concomitant]
     Dosage: 200 MG, QID
  13. ARIMIDEX [Concomitant]
     Dosage: 1 MG, QD
  14. ASPIRIN [Concomitant]
     Dosage: 81 MG, QD
  15. LANOXIN [Concomitant]
     Dosage: 0.125, QD
  16. CARDIZEM CD [Concomitant]
     Dosage: 240 MG, QD
  17. PROZAC                             /00724401/ [Concomitant]
     Dosage: 20, QD
  18. FLOVENT [Concomitant]
     Dosage: 2 PUFFS, BID
  19. FOLIC ACID [Concomitant]
     Dosage: 1 MG, QD
  20. SINGULAIR [Concomitant]
     Dosage: 10 MG, QD
  21. ALDACTONE [Concomitant]
     Dosage: 50 MG, QD

REACTIONS (5)
  - CHRONIC OBSTRUCTIVE PULMONARY DISEASE [None]
  - CONFUSIONAL STATE [None]
  - ENCEPHALOPATHY [None]
  - FATIGUE [None]
  - URINARY TRACT INFECTION [None]
